FAERS Safety Report 5987476-3 (Version None)
Quarter: 2008Q4

REPORT INFORMATION
  Report Type: 
  Country: None (occurrence: None)
  Receive Date: 20081209
  Receipt Date: 20081203
  Transmission Date: 20090506
  Serious: Yes (Hospitalization)
  Sender: FDA-Public Use
  Company Number: JP-ASTRAZENECA-2008AP09356

PATIENT
  Age: 32 Year
  Sex: Female

DRUGS (2)
  1. ANAPEINE INJECTION 7.5MG/ML [Suspect]
     Indication: EPIDURAL ANAESTHESIA
     Dosage: DILUTED BY 0.2% AND ADMINISTERED AT 7.5MG/DAY FOR 2 DAYS.
     Route: 008
     Dates: start: 20081128, end: 20081130
  2. MORPHINE HCL ELIXIR [Concomitant]
     Indication: EPIDURAL ANAESTHESIA
     Dosage: 1.5MG/DAY FOR 2 DAYS.
     Route: 008
     Dates: start: 20081128, end: 20081130

REACTIONS (1)
  - PARALYSIS [None]
